FAERS Safety Report 6203665-7 (Version None)
Quarter: 2009Q2

REPORT INFORMATION
  Report Type: 
  Country: None (occurrence: None)
  Receive Date: 20090527
  Receipt Date: 20090522
  Transmission Date: 20091009
  Serious: Yes (Hospitalization)
  Sender: FDA-Public Use
  Company Number: JP-AVENTIS-200911008JP

PATIENT
  Age: 75 Year
  Sex: Male
  Weight: 42 kg

DRUGS (4)
  1. TAXOTERE [Suspect]
     Route: 041
     Dates: start: 20081119
  2. NAIXAN                             /00256201/ [Concomitant]
     Indication: PAIN
     Route: 048
     Dates: start: 20090210
  3. NASEA [Concomitant]
     Indication: PREMEDICATION
     Route: 041
  4. DECADRON PHOSPHATE [Concomitant]
     Indication: PREMEDICATION
     Route: 041

REACTIONS (1)
  - PNEUMOTHORAX [None]
